FAERS Safety Report 5241087-6 (Version None)
Quarter: 2007Q1

REPORT INFORMATION
  Report Type: 
  Country: None (occurrence: None)
  Receive Date: 20070214
  Receipt Date: 20070214
  Transmission Date: 20070707
  Serious: Yes (Hospitalization)
  Sender: FDA-Public Use
  Company Number: None

PATIENT
  Age: 30 Year
  Sex: Male

DRUGS (5)
  1. DHE MESYLATE 0.5MG IV Q6H [Suspect]
     Indication: HEADACHE
     Dates: start: 20061023, end: 20061023
  2. RISPERDAL [Concomitant]
  3. KLONOPIN [Concomitant]
  4. NICOTINE [Concomitant]
  5. MIRTAZAPINE [Concomitant]

REACTIONS (3)
  - FLUSHING [None]
  - NAUSEA [None]
  - VOMITING [None]
